FAERS Safety Report 4286618-8 (Version None)
Quarter: 2004Q1

REPORT INFORMATION
  Report Type: 
  Country: None (occurrence: None)
  Receive Date: 20040206
  Receipt Date: 20040126
  Transmission Date: 20041129
  Serious: Yes (Other)
  Sender: FDA-Public Use
  Company Number: PHBS2004CA01445

PATIENT
  Sex: Male

DRUGS (2)
  1. GLEEVEC [Suspect]
     Dosage: 400 MG/D
     Route: 048
  2. GLEEVEC [Suspect]
     Dosage: UNK, UNK
     Route: 048

REACTIONS (2)
  - DRUG EFFECT DECREASED [None]
  - RED BLOOD CELL AGGLUTINATION [None]
